FAERS Safety Report 23033214 (Version 1)
Quarter: 2023Q4

REPORT INFORMATION
  Report Type: Spontaneous
  Country: US (occurrence: US)
  Receive Date: 20231005
  Receipt Date: 20231005
  Transmission Date: 20240110
  Serious: No
  Sender: FDA-Public Use
  Company Number: US-HBP-2023US029705

PATIENT
  Age: 45 Year
  Sex: Male

DRUGS (2)
  1. MECHLORETHAMINE [Suspect]
     Active Substance: MECHLORETHAMINE
     Indication: Cutaneous T-cell lymphoma
     Dosage: UNK UNK, QD
     Route: 061
  2. MECHLORETHAMINE [Suspect]
     Active Substance: MECHLORETHAMINE
     Dosage: UNK, BID
     Route: 061

REACTIONS (9)
  - Application site discharge [Unknown]
  - Application site erosion [Unknown]
  - Application site scab [Unknown]
  - Impetigo [Unknown]
  - Application site reaction [Unknown]
  - Off label use [Unknown]
  - Application site eczema [Unknown]
  - Application site dermatitis [Recovering/Resolving]
  - Drug effect less than expected [Unknown]
